FAERS Safety Report 7515138-X (Version None)
Quarter: 2011Q2

REPORT INFORMATION
  Report Type: 
  Country: None (occurrence: None)
  Receive Date: 20110601
  Receipt Date: 20100517
  Transmission Date: 20111010
  Serious: Yes (Other)
  Sender: FDA-Public Use
  Company Number: US-PFIZER INC-2010062285

PATIENT
  Sex: Male
  Weight: 63.492 kg

DRUGS (3)
  1. CLARITIN-D 24 HOUR [Concomitant]
     Indication: HYPERSENSITIVITY
     Dosage: UNK
     Route: 048
     Dates: start: 20100301
  2. ZYBAN [Suspect]
     Dosage: UNK
  3. CHANTIX [Suspect]
     Indication: SMOKING CESSATION THERAPY
     Dosage: 0.5 MG, 1X/DAY
     Route: 048
     Dates: start: 20100402

REACTIONS (3)
  - ABNORMAL DREAMS [None]
  - INSOMNIA [None]
  - AGITATION [None]
